FAERS Safety Report 10691248 (Version 1)
Quarter: 2014Q4

REPORT INFORMATION
  Report Type: Spontaneous
  Country: US (occurrence: None)
  Receive Date: 20141216
  Receipt Date: 20141216
  Transmission Date: 20150529
  Serious: Yes (Other)
  Sender: FDA-Public Use
  Company Number: 2014010618

PATIENT
  Age: 68 Year
  Sex: Male
  Weight: 89.8 kg

DRUGS (12)
  1. POTASSIUM (POTASSIUM CHLORIDE) [Concomitant]
  2. NEUPRO [Suspect]
     Active Substance: ROTIGOTINE
     Indication: PARKINSON^S DISEASE
     Dosage: 2 MG, ONCE DAILY (QD), 1 PATCH PER DAY, TRANSDERMAL
     Route: 062
     Dates: start: 20140418, end: 20140418
  3. WARFARIN (WARFARIN SODIUM) [Concomitant]
  4. SINEMENT (CARBIDOPA, LEVODOPA) [Concomitant]
  5. VITAMIN D (COLECALCIFEROL) [Concomitant]
  6. TYLENOL [Concomitant]
     Active Substance: ACETAMINOPHEN
  7. IRON (ASCORBIC ACID, BETAINE HYDROCHLORIDE, COPPER, CYANOCOBALAMIN, FOLIC ACID, IRON, MANGANESE, NICOTINAMIDE, PYRIDOXINE HYDROCHLORIDE, RIBOFLAVIN, THIAMINE HYDROCHLORIDED)? [Concomitant]
  8. PLAVIX (CLOPIDOGREL BISULFATE) [Concomitant]
  9. MULTIVITAMIN (VITAMINS NOS) [Concomitant]
     Active Substance: VITAMINS
  10. BENADRYL (AMMONIUM CHLORIDE, DIPHENHYDRAMINE HYDROCHLORIDE, MENTHOL, SODIUM CITRATE)? [Concomitant]
  11. FISH OIL [Concomitant]
     Active Substance: FISH OIL
  12. ZANTAC [Concomitant]
     Active Substance: RANITIDINE HYDROCHLORIDE

REACTIONS (1)
  - Heart rate increased [None]

NARRATIVE: CASE EVENT DATE: 20140418
